FAERS Safety Report 11993140 (Version 1)
Quarter: 2016Q1

REPORT INFORMATION
  Report Type: Spontaneous
  Country: GB (occurrence: GB)
  Receive Date: 20160203
  Receipt Date: 20160203
  Transmission Date: 20160526
  Serious: Yes (Hospitalization)
  Sender: FDA-Public Use
  Company Number: GB-TEVA-628328ACC

PATIENT
  Age: 74 Year
  Sex: Male

DRUGS (13)
  1. POSACONAZOLE [Interacting]
     Active Substance: POSACONAZOLE
  2. LOSARTAN. [Concomitant]
     Active Substance: LOSARTAN
  3. METFORMIN [Concomitant]
     Active Substance: METFORMIN HYDROCHLORIDE
  4. PREDNISOLONE. [Concomitant]
     Active Substance: PREDNISOLONE
  5. SALBUTAMOL [Concomitant]
     Active Substance: ALBUTEROL
  6. LUMIGAN [Concomitant]
     Active Substance: BIMATOPROST
  7. CLARITHROMYCIN. [Suspect]
     Active Substance: CLARITHROMYCIN
     Indication: LOWER RESPIRATORY TRACT INFECTION
     Dosage: 1000 MILLIGRAM DAILY;
     Route: 048
     Dates: start: 20151231, end: 20160103
  8. CLOPIDOGREL [Concomitant]
     Active Substance: CLOPIDOGREL BISULFATE
  9. DORZOLAMIDE [Concomitant]
     Active Substance: DORZOLAMIDE
  10. DIGOXIN. [Interacting]
     Active Substance: DIGOXIN
  11. CREON [Concomitant]
     Active Substance: PANCRELIPASE AMYLASE\PANCRELIPASE LIPASE\PANCRELIPASE PROTEASE
  12. FOLIC ACID. [Concomitant]
     Active Substance: FOLIC ACID
  13. GLICLAZIDE [Concomitant]
     Active Substance: GLICLAZIDE

REACTIONS (4)
  - Drug interaction [Unknown]
  - Cardioactive drug level increased [Unknown]
  - Syncope [Unknown]
  - Dizziness [Unknown]

NARRATIVE: CASE EVENT DATE: 20160103
